FAERS Safety Report 6286937-X (Version None)
Quarter: 2009Q3

REPORT INFORMATION
  Report Type: 
  Country: None (occurrence: None)
  Receive Date: 20090728
  Receipt Date: 20090714
  Transmission Date: 20100115
  Serious: Yes (Death, Hospitalization)
  Sender: FDA-Public Use
  Company Number: DE-MYLANLABS-2009S1012427

PATIENT
  Age: 63 Year
  Sex: Male

DRUGS (8)
  1. ZIDOVUDINE [Suspect]
     Indication: ACUTE HIV INFECTION
     Dates: start: 19940101
  2. ZALCITABINE [Suspect]
     Indication: ACUTE HIV INFECTION
     Dates: start: 19940101
  3. SAQUINAVIR [Suspect]
     Indication: ACUTE HIV INFECTION
     Dates: start: 19970101
  4. LAMIVUDINE [Suspect]
     Indication: ACUTE HIV INFECTION
     Dates: start: 20000101
  5. ABACAVIR [Suspect]
     Indication: ACUTE HIV INFECTION
     Dates: start: 20000101
  6. EFAVIRENZ [Suspect]
     Indication: ACUTE HIV INFECTION
     Dates: start: 20000101
  7. TENOFOVIR [Suspect]
     Indication: ACUTE HIV INFECTION
     Dates: start: 20020401
  8. EMTRICITABINE [Suspect]
     Indication: ACUTE HIV INFECTION
     Dates: start: 20020401

REACTIONS (1)
  - MYELODYSPLASTIC SYNDROME [None]
